FAERS Safety Report 6721858-7 (Version None)
Quarter: 2010Q2

REPORT INFORMATION
  Report Type: 
  Country: None (occurrence: None)
  Receive Date: 20100512
  Receipt Date: 20100428
  Transmission Date: 20101027
  Serious: Yes (Hospitalization, Other)
  Sender: FDA-Public Use
  Company Number: PHHY2010FR26494

PATIENT
  Sex: Female

DRUGS (12)
  1. LEPONEX [Suspect]
     Indication: BIPOLAR DISORDER
     Dosage: 37.5 MG PER DAY
     Dates: start: 20100406
  2. LEPONEX [Suspect]
     Dosage: 50 MG, QD
     Dates: end: 20100421
  3. RISPERDAL [Concomitant]
     Dosage: 2.5 MG PER DAY
  4. RISPERDAL [Concomitant]
     Dosage: 0.5 MG PER DAY
  5. SINEMET [Concomitant]
     Dosage: 3 DF PER DAY
  6. TRIVASTAL [Concomitant]
     Dosage: 50 MG, TID
  7. LEVOTHYROXINE SODIUM [Concomitant]
     Indication: HYPOTHYROIDISM
     Dosage: 25 UG, BID
  8. KALEORID [Concomitant]
     Dosage: 600 MG, UNK
  9. COUMADIN [Concomitant]
     Indication: PULMONARY EMBOLISM
     Dosage: 5 MG, QD
  10. HEPTAMINOL [Concomitant]
  11. TOPALGIC [Concomitant]
  12. FORLAX [Concomitant]

REACTIONS (20)
  - ABDOMINAL PAIN [None]
  - ASTHENIA [None]
  - BUNDLE BRANCH BLOCK LEFT [None]
  - CREPITATIONS [None]
  - DYSURIA [None]
  - ELECTROCARDIOGRAM ABNORMAL [None]
  - FALL [None]
  - GENERAL PHYSICAL HEALTH DETERIORATION [None]
  - HEADACHE [None]
  - INFLAMMATION [None]
  - MICTURITION URGENCY [None]
  - MYOPERICARDITIS [None]
  - PERICARDIAL EFFUSION [None]
  - PERICARDITIS [None]
  - PHOTOPHOBIA [None]
  - PNEUMONIA [None]
  - PYREXIA [None]
  - SINUS TACHYCARDIA [None]
  - SOMNOLENCE [None]
  - URINE ANALYSIS ABNORMAL [None]
